FAERS Safety Report 8389618-1 (Version None)
Quarter: 2012Q2

REPORT INFORMATION
  Report Type: 
  Country: None (occurrence: None)
  Receive Date: 20120528
  Receipt Date: 20120521
  Transmission Date: 20120825
  Serious: Yes (Other)
  Sender: FDA-Public Use
  Company Number: US-ROCHE-1052130

PATIENT
  Sex: Female
  Weight: 48.578 kg

DRUGS (1)
  1. XELODA [Suspect]
     Indication: BILE DUCT CANCER
     Route: 048
     Dates: start: 20110901

REACTIONS (1)
  - DISEASE PROGRESSION [None]
